FAERS Safety Report 4385526-1 (Version None)
Quarter: 2004Q2

REPORT INFORMATION
  Report Type: 
  Country: None (occurrence: None)
  Receive Date: 20040628
  Receipt Date: 20040616
  Transmission Date: 20050107
  Serious: Yes (Hospitalization)
  Sender: FDA-Public Use
  Company Number: US-BRISTOL-MYERS SQUIBB COMPANY-12615712

PATIENT
  Age: 57 Year
  Sex: Male
  Weight: 90 kg

DRUGS (6)
  1. ARIPIPRAZOLE [Suspect]
     Indication: POST-TRAUMATIC STRESS DISORDER
     Route: 048
     Dates: start: 20040311, end: 20040526
  2. GLYBURIDE [Concomitant]
  3. RANITIDINE [Concomitant]
  4. HYDROCODONE + ACETAMINOPHEN [Concomitant]
     Dosage: 7.5/500 MG PRN
  5. ETODOLAC [Concomitant]
  6. CLOTRIMAZOLE [Concomitant]
     Route: 061

REACTIONS (2)
  - ALCOHOLISM [None]
  - DEPRESSIVE SYMPTOM [None]
